FAERS Safety Report 9899946 (Version 1)
Quarter: 2014Q1

REPORT INFORMATION
  Report Type: Not Available
  Country: US (occurrence: US)
  Receive Date: 20140214
  Receipt Date: 20140214
  Transmission Date: 20141002
  Serious: No
  Sender: FDA-Public Use
  Company Number: US-VIVUS-2013V1000835

PATIENT
  Age: 71 Year
  Sex: Female
  Weight: 82.17 kg

DRUGS (6)
  1. QSYMIA 3.75MG/23MG [Suspect]
     Indication: WEIGHT DECREASED
     Route: 048
     Dates: start: 20131104
  2. NEXIUM [Concomitant]
     Indication: GASTROOESOPHAGEAL REFLUX DISEASE
     Route: 048
     Dates: start: 2005
  3. TRIAMTERENE/HCTZ [Concomitant]
     Indication: HYPERTENSION
     Dosage: 37.5MG/25MG
     Route: 048
     Dates: start: 2005
  4. LOSARTAN [Concomitant]
     Indication: HYPERTENSION
     Dosage: STARTED 8 YEARS AGO
     Route: 048
  5. CRESTOR [Concomitant]
     Indication: BLOOD CHOLESTEROL INCREASED
     Route: 048
     Dates: start: 2005
  6. SYMBICORT [Concomitant]
     Indication: ASTHMA
     Dosage: 80MG/4.5MG
     Dates: start: 2012

REACTIONS (1)
  - Increased appetite [Not Recovered/Not Resolved]
